FAERS Safety Report 10660371 (Version 1)
Quarter: 2014Q4

REPORT INFORMATION
  Report Type: Spontaneous
  Country: US (occurrence: US)
  Receive Date: 20141217
  Receipt Date: 20141217
  Transmission Date: 20150529
  Serious: No
  Sender: FDA-Public Use
  Company Number: US-GLAXOSMITHKLINE-A1088327A

PATIENT

DRUGS (1)
  1. VOTRIENT [Suspect]
     Active Substance: PAZOPANIB HYDROCHLORIDE
     Indication: NEOPLASM
     Dosage: TAKE 4 TABLETS BY MOUTH EVERY DAY OF 200 MG FOR A TOTAL OF 800 MG
     Route: 048
     Dates: start: 20140515, end: 20140905

REACTIONS (1)
  - Drug ineffective [Unknown]
